FAERS Safety Report 5766561-5 (Version None)
Quarter: 2008Q2

REPORT INFORMATION
  Report Type: 
  Country: None (occurrence: None)
  Receive Date: 20080612
  Receipt Date: 20080606
  Transmission Date: 20081010
  Serious: Yes (Other)
  Sender: FDA-Public Use
  Company Number: US-BAYER-200816038NA

PATIENT
  Age: 45 Year
  Sex: Female
  Weight: 73 kg

DRUGS (4)
  1. MIRENA [Suspect]
     Indication: CONTRACEPTION
     Route: 015
     Dates: start: 20070925
  2. SYNTHROID [Concomitant]
     Indication: HYPERTHYROIDISM
  3. SINGULAIR [Concomitant]
     Route: 048
  4. WELLBUTRIN XL [Concomitant]
     Route: 048

REACTIONS (5)
  - ABDOMINAL PAIN [None]
  - GENITAL HAEMORRHAGE [None]
  - HYPERTHYROIDISM [None]
  - MENORRHAGIA [None]
  - POLYMENORRHOEA [None]
